FAERS Safety Report 15663279 (Version 1)
Quarter: 2018Q4

REPORT INFORMATION
  Report Type: Report from Study
  Country: None (occurrence: US)
  Receive Date: 20181128
  Receipt Date: 20181128
  Transmission Date: 20190205
  Serious: Yes (Other)
  Sender: FDA-Public Use
  Company Number: US-ABBVIE-18K-163-2555449-00

PATIENT
  Age: 35 Year
  Sex: Male
  Weight: 102.15 kg

DRUGS (1)
  1. HUMIRA [Suspect]
     Active Substance: ADALIMUMAB
     Indication: PSORIATIC ARTHROPATHY
     Route: 058
     Dates: start: 2015, end: 201811

REACTIONS (8)
  - Oropharyngeal pain [Not Recovered/Not Resolved]
  - Pharyngeal inflammation [Recovering/Resolving]
  - Procedural pain [Recovering/Resolving]
  - Insomnia [Not Recovered/Not Resolved]
  - Sleep apnoea syndrome [Not Recovered/Not Resolved]
  - Ear pain [Not Recovered/Not Resolved]
  - Tonsillar hypertrophy [Recovered/Resolved]
  - Tonsillar inflammation [Recovered/Resolved]

NARRATIVE: CASE EVENT DATE: 2017
